FAERS Safety Report 7181659-5 (Version None)
Quarter: 2010Q4

REPORT INFORMATION
  Report Type: 
  Country: None (occurrence: None)
  Receive Date: 20101221
  Receipt Date: 20100428
  Transmission Date: 20110411
  Serious: No
  Sender: FDA-Public Use
  Company Number: US-AMGEN-KDL406989

PATIENT

DRUGS (3)
  1. ENBREL [Suspect]
     Indication: JUVENILE ARTHRITIS
     Dosage: 25 MG, QWK
     Dates: start: 20100319
  2. METHOTREXATE [Concomitant]
     Dosage: 25 MG, QWK
     Route: 058
     Dates: start: 20081201
  3. FOLINIC ACID [Concomitant]
     Dosage: UNK UNK, UNK
     Dates: start: 20081201

REACTIONS (6)
  - ARTHRALGIA [None]
  - HEADACHE [None]
  - INJECTION SITE HAEMATOMA [None]
  - INJECTION SITE REACTION [None]
  - MIGRAINE [None]
  - VOMITING [None]
